FAERS Safety Report 5018538-5 (Version None)
Quarter: 2006Q2

REPORT INFORMATION
  Report Type: 
  Country: None (occurrence: None)
  Receive Date: 20060414
  Receipt Date: 20051219
  Transmission Date: 20061013
  Serious: No
  Sender: FDA-Public Use
  Company Number: 2005SP004462

PATIENT
  Age: 52 Year
  Sex: Female
  Weight: 83.9154 kg

DRUGS (5)
  1. LUNESTA [Suspect]
     Indication: INSOMNIA
     Dosage: 2 MG;HS;ORAL
     Route: 048
     Dates: start: 20051213, end: 20060101
  2. PANTOPRAZOLE SODIUM [Concomitant]
  3. PRAVACHOL [Concomitant]
  4. MULTIVITAMIN [Concomitant]
  5. HERBAL PREPARATION [Concomitant]

REACTIONS (1)
  - INSOMNIA [None]
